FAERS Safety Report 10084300 (Version 2)
Quarter: 2014Q2

REPORT INFORMATION
  Report Type: Spontaneous
  Country: IE (occurrence: IE)
  Receive Date: 20140417
  Receipt Date: 20140501
  Transmission Date: 20141212
  Serious: Yes (Other)
  Sender: FDA-Public Use
  Company Number: IE-PFIZER INC-2014107236

PATIENT
  Sex: Male

DRUGS (4)
  1. TRITACE [Suspect]
     Indication: BLOOD PRESSURE
     Dosage: 1 DF, DAILY
     Route: 065
     Dates: end: 201303
  2. ATORVASTATIN [Concomitant]
     Dosage: UNK
  3. SOTACOR [Concomitant]
     Dosage: UNK
  4. NU-SEALS ASPIRIN [Concomitant]
     Dosage: UNK

REACTIONS (2)
  - Choking [Recovered/Resolved]
  - Cough [Recovered/Resolved]
